FAERS Safety Report 22636639 (Version 1)
Quarter: 2023Q2

REPORT INFORMATION
  Report Type: Spontaneous
  Country: US (occurrence: US)
  Receive Date: 20230623
  Receipt Date: 20230623
  Transmission Date: 20230722
  Serious: No
  Sender: FDA-Public Use
  Company Number: US-Covis Pharma GmbH-2023COV01345

PATIENT
  Age: 57 Year
  Sex: Female

DRUGS (1)
  1. ALVESCO [Suspect]
     Active Substance: CICLESONIDE
     Dosage: 1 PUFF BID BUT PATIENT STATES DAYS SHE ONLY USES 1 PUFF PER DAY.
     Route: 065

REACTIONS (2)
  - Dysphonia [Not Recovered/Not Resolved]
  - Product dose omission issue [Unknown]

NARRATIVE: CASE EVENT DATE: 20230601
